FAERS Safety Report 5573498-3 (Version None)
Quarter: 2007Q4

REPORT INFORMATION
  Report Type: 
  Country: None (occurrence: None)
  Receive Date: 20071220
  Receipt Date: 20071220
  Transmission Date: 20080405
  Serious: Yes (Hospitalization)
  Sender: FDA-Public Use
  Company Number: None

PATIENT
  Age: 84 Year
  Sex: Female

DRUGS (1)
  1. IOHEXOL [Suspect]
     Indication: SCAN WITH CONTRAST
     Dates: start: 20070205, end: 20070205

REACTIONS (3)
  - APNOEA [None]
  - BRADYCARDIA [None]
  - HYPOTENSION [None]
